FAERS Safety Report 17986035 (Version 2)
Quarter: 2020Q3

REPORT INFORMATION
  Report Type: Report from Study
  Country: US (occurrence: US)
  Receive Date: 20200706
  Receipt Date: 20200812
  Transmission Date: 20201103
  Serious: Yes (Other)
  Sender: FDA-Public Use
  Company Number: US-MYLANLABS-2020M1059972

PATIENT
  Age: 16 Year
  Sex: Male
  Weight: 76.19 kg

DRUGS (8)
  1. SYNTHROID [Concomitant]
     Active Substance: LEVOTHYROXINE SODIUM
     Dosage: 0.25 MICROGRAM, QD
  2. CLONIDINE. [Concomitant]
     Active Substance: CLONIDINE
     Dosage: 0.2 MILLIGRAM, AM
  3. CLOZAPINE. [Suspect]
     Active Substance: CLOZAPINE
     Indication: INTERMITTENT EXPLOSIVE DISORDER
  4. TRILEPTAL [Concomitant]
     Active Substance: OXCARBAZEPINE
     Dosage: 600 MILLIGRAM, QD, 8 AM/ 8 PM
  5. CLONIDINE. [Concomitant]
     Active Substance: CLONIDINE
     Dosage: 0.1 MILLIGRAM, BID, 3 PM AND 8 PM
  6. VYVANSE [Concomitant]
     Active Substance: LISDEXAMFETAMINE DIMESYLATE
     Dosage: 50 MILLIGRAM, AM
  7. CLOZAPINE. [Suspect]
     Active Substance: CLOZAPINE
     Indication: AUTISM SPECTRUM DISORDER
     Dosage: 250 MILLIGRAM, PM
     Dates: start: 20191224
  8. MINOCYCLINE [Concomitant]
     Active Substance: MINOCYCLINE HYDROCHLORIDE
     Dosage: 100 MILLIGRAM, QD, 8 AM/ 8 PM

REACTIONS (2)
  - Neutropenia [Recovered/Resolved]
  - White blood cell count decreased [Recovered/Resolved]

NARRATIVE: CASE EVENT DATE: 20200624
